FAERS Safety Report 26122152 (Version 1)
Quarter: 2025Q4

REPORT INFORMATION
  Report Type: Spontaneous
  Country: CN (occurrence: CN)
  Receive Date: 20251204
  Receipt Date: 20251204
  Transmission Date: 20260118
  Serious: Yes (Hospitalization, Other)
  Sender: PFIZER
  Company Number: CN-PFIZER INC-PV202500140023

PATIENT
  Age: 72 Year
  Sex: Female

DRUGS (2)
  1. ZYVOX [Suspect]
     Active Substance: LINEZOLID
     Indication: Urinary tract infection
     Dosage: 0.6 G, 2X/DAY
     Route: 048
     Dates: start: 20250529, end: 20250602
  2. LINEZOLID [Suspect]
     Active Substance: LINEZOLID
     Indication: Urinary tract infection
     Dosage: 0.6 G, 2X/DAY
     Route: 041
     Dates: start: 20250602, end: 20250603

REACTIONS (7)
  - Rash pruritic [Recovering/Resolving]
  - Drug eruption [Recovering/Resolving]
  - Erythema [Recovering/Resolving]
  - Papule [Recovering/Resolving]
  - Peripheral swelling [Recovering/Resolving]
  - Pruritus [Recovering/Resolving]
  - Rash erythematous [Recovering/Resolving]

NARRATIVE: CASE EVENT DATE: 20250531
